FAERS Safety Report 8445473-2 (Version None)
Quarter: 2012Q2

REPORT INFORMATION
  Report Type: 
  Country: None (occurrence: None)
  Receive Date: 20120618
  Receipt Date: 20120612
  Transmission Date: 20120825
  Serious: Yes (Other)
  Sender: FDA-Public Use
  Company Number: PHHY2012FR051165

PATIENT
  Sex: Female

DRUGS (20)
  1. VANCOMYCIN HCL [Suspect]
     Dosage: 500 MG, BID
     Route: 042
     Dates: start: 20120506, end: 20120508
  2. POTASSIUM CHLORIDE [Concomitant]
     Dosage: 600 MG, BID
  3. LASIX [Concomitant]
     Dosage: 10 MG, UNK
  4. MINISINTROM [Suspect]
     Dates: start: 20120425
  5. ZOLPIDEM TARTRATE [Concomitant]
     Dosage: 10 MG, QD
  6. AMLODIPINE BESYLATE [Concomitant]
     Dosage: 1 DF, QD
  7. FOLIC ACID [Concomitant]
     Dosage: 1 DF, QD
  8. AMIKACIN [Suspect]
     Dates: start: 20120507, end: 20120510
  9. INNOHEP [Concomitant]
     Dosage: 10000 IU, UNK
  10. PIPERACILLIN/TAZOBACTAM [Suspect]
     Indication: BACTERAEMIA
     Dosage: 500 MG, QID
     Route: 042
     Dates: start: 20120506, end: 20120509
  11. IMIPENEM AND CILASTATIN SODIUM [Suspect]
     Route: 042
     Dates: start: 20120507, end: 20120521
  12. MOVIPREP [Concomitant]
     Dosage: 1 DF, UNK
  13. GENTAMICIN [Suspect]
     Indication: BACTERAEMIA
     Dates: start: 20120506, end: 20120509
  14. ACETAMINOPHEN [Concomitant]
  15. FERROUS FUMARATE [Concomitant]
     Dosage: 1 DF, QD
  16. ACETAMINOPHEN AND TRAMADOL HCL [Concomitant]
  17. NEBIVOLOL HCL [Concomitant]
     Dosage: 0.5 DF, UNK
  18. DIGOXIN [Concomitant]
     Dosage: 1 DF, UNK
  19. NICARDIPINE HYDROCHLORIDE [Concomitant]
     Dosage: 50 MG, BID
  20. RAMIPRIL [Concomitant]
     Dosage: 1.25 MG, QD

REACTIONS (2)
  - INTERNATIONAL NORMALISED RATIO INCREASED [None]
  - OVERDOSE [None]
